FAERS Safety Report 5085439-6 (Version None)
Quarter: 2006Q3

REPORT INFORMATION
  Report Type: 
  Country: None (occurrence: None)
  Receive Date: 20060816
  Receipt Date: 20060804
  Transmission Date: 20061208
  Serious: Yes (Death, Life-Threatening)
  Sender: FDA-Public Use
  Company Number: HQWYE510323MAY06

PATIENT
  Age: 47 Year
  Sex: Male

DRUGS (8)
  1. MYLOTARG [Suspect]
     Indication: ACUTE MYELOID LEUKAEMIA RECURRENT
     Dosage: 6 MG/M^2 1X PER 1 DAY, INTRAVENOUS DRIP
     Route: 041
     Dates: start: 20051021, end: 20051021
  2. ZANTAC [Concomitant]
  3. PRODIF (FOSFLUCONAZOLE) [Concomitant]
  4. MAXIPIME [Concomitant]
  5. SODIUM BICARBONATE [Concomitant]
  6. OXYCONTIN [Concomitant]
  7. MAGNESIUM OXIDE (MAGNESIIUM OXIDE) [Concomitant]
  8. URSO 250 [Concomitant]

REACTIONS (11)
  - BLOOD ALKALINE PHOSPHATASE INCREASED [None]
  - BLOOD LACTATE DEHYDROGENASE INCREASED [None]
  - CEREBRAL HAEMORRHAGE [None]
  - COAGULOPATHY [None]
  - DISEASE PROGRESSION [None]
  - GAMMA-GLUTAMYLTRANSFERASE INCREASED [None]
  - HEPATIC FUNCTION ABNORMAL [None]
  - PROTHROMBIN TIME PROLONGED [None]
  - PYREXIA [None]
  - WEIGHT INCREASED [None]
  - WHITE BLOOD CELL COUNT INCREASED [None]
